FAERS Safety Report 9253730 (Version 1)
Quarter: 2013Q2

REPORT INFORMATION
  Report Type: Report from Study
  Country: CA (occurrence: CA)
  Receive Date: 20130425
  Receipt Date: 20130425
  Transmission Date: 20140414
  Serious: Yes (Other)
  Sender: FDA-Public Use
  Company Number: CA-ROCHE-1217593

PATIENT
  Age: 53 Year
  Sex: Female
  Weight: 60.8 kg

DRUGS (13)
  1. AVASTIN [Suspect]
     Indication: COLON CANCER METASTATIC
     Route: 042
     Dates: start: 201209
  2. FOLINIC ACID [Suspect]
     Indication: COLON CANCER METASTATIC
     Route: 042
     Dates: start: 201209, end: 201303
  3. FLUOROURACIL [Suspect]
     Indication: COLON CANCER METASTATIC
     Route: 042
     Dates: start: 201209, end: 201303
  4. IRINOTECAN [Suspect]
     Indication: COLON CANCER METASTATIC
     Route: 042
     Dates: start: 201209, end: 201303
  5. DEXAMETHASONE [Concomitant]
  6. DOMPERIDONE [Concomitant]
  7. PANTOPRAZOLE [Concomitant]
  8. VITAMIN C [Concomitant]
  9. GRAVOL [Concomitant]
     Route: 065
  10. MORPHINE [Concomitant]
     Route: 065
  11. TYLENOL #3 (CANADA) [Concomitant]
     Route: 065
  12. TYLENOL [Concomitant]
     Route: 065
  13. NEUPOGEN [Concomitant]
     Route: 065

REACTIONS (2)
  - Gallbladder disorder [Unknown]
  - Drug ineffective [Unknown]
